FAERS Safety Report 4486510-X (Version None)
Quarter: 2004Q4

REPORT INFORMATION
  Report Type: 
  Country: None (occurrence: None)
  Receive Date: 20041022
  Receipt Date: 20041006
  Transmission Date: 20050328
  Serious: Yes (Death)
  Sender: FDA-Public Use
  Company Number: 2004-BP-09616RO

PATIENT
  Age: 32 Year
  Sex: Male

DRUGS (1)
  1. COCAINE HCL TOPICAL SOLUTION, 10% (COCAINE) [Suspect]
     Dosage: PO
     Route: 048

REACTIONS (3)
  - MEDICATION ERROR [None]
  - OVERDOSE [None]
  - POISONING [None]
